FAERS Safety Report 10370576 (Version 1)
Quarter: 2014Q1

REPORT INFORMATION
  Report Type: Spontaneous
  Country: US (occurrence: None)
  Receive Date: 20140306
  Receipt Date: 20140306
  Transmission Date: 20141002
  Serious: Yes (Hospitalization)
  Sender: FDA-Public Use
  Company Number: 163-21880-13093855

PATIENT
  Age: 89 Year
  Sex: Male

DRUGS (9)
  1. REVLIMID (LENALIDOMIDE) (10 MILLIGRAM, CAPSULES) [Suspect]
     Indication: PLASMA CELL MYELOMA
     Dosage: 20 MG, 21 IN 28 D, PO
     Route: 048
     Dates: start: 20130731, end: 2013
  2. ZIOPTAN (TAFLUPROST) (DROPS) [Concomitant]
  3. RESTASIS (CICLOSPORIN) (DROPS) [Concomitant]
  4. GABAPENTIN (CAPSULES) [Concomitant]
  5. BIOTIN (CAPSULES) [Concomitant]
  6. ASPIRIN (ACETYLSALICYLIC ACID) (UNKNOWN) (ACETYLSALICYLIC ACID) [Concomitant]
  7. MULTIVITAMINS (CAPSULES) [Concomitant]
  8. NIACIN (NICOTINIC ACID) (UNKNOWN) [Concomitant]
  9. GLUCOSAMINE CHONDROITIN (GLUCOSAMINE W/CHONDROITIN SULFATE) (UNKNOWN) [Concomitant]

REACTIONS (3)
  - Fatigue [None]
  - Drug ineffective [None]
  - Pain [None]
